FAERS Safety Report 4598640-2 (Version None)
Quarter: 2005Q1

REPORT INFORMATION
  Report Type: 
  Country: None (occurrence: None)
  Receive Date: 20050303
  Receipt Date: 20050303
  Transmission Date: 20050727
  Serious: Yes (Other)
  Sender: FDA-Public Use
  Company Number: None

PATIENT
  Sex: Male
  Weight: 19 kg

DRUGS (1)
  1. HUMATROPE [Suspect]
     Indication: BODY HEIGHT BELOW NORMAL
     Dosage: 1 MG SUB-Q QD
     Route: 058
     Dates: start: 20050107, end: 20050215

REACTIONS (2)
  - CARDIAC MURMUR [None]
  - DEAFNESS [None]
